FAERS Safety Report 9955795 (Version 1)
Quarter: 2014Q1

REPORT INFORMATION
  Report Type: Report from Study
  Country: US (occurrence: US)
  Receive Date: 20140304
  Receipt Date: 20140304
  Transmission Date: 20141002
  Serious: Yes (Other)
  Sender: FDA-Public Use
  Company Number: US-ABBVIE-13P-163-1090006-00

PATIENT
  Sex: Female
  Weight: 57.66 kg

DRUGS (9)
  1. HUMIRA [Suspect]
     Indication: RHEUMATOID ARTHRITIS
     Route: 058
     Dates: start: 201301
  2. PRIMAZOLE [Concomitant]
     Indication: GASTROOESOPHAGEAL REFLUX DISEASE
  3. HCTZ [Concomitant]
     Indication: PRODUCT USED FOR UNKNOWN INDICATION
  4. CLONIDINE [Concomitant]
     Indication: HYPERTENSION
  5. CALCIUM [Concomitant]
     Indication: PRODUCT USED FOR UNKNOWN INDICATION
  6. VIT D3 [Concomitant]
     Indication: PRODUCT USED FOR UNKNOWN INDICATION
  7. MVI [Concomitant]
     Indication: PRODUCT USED FOR UNKNOWN INDICATION
  8. PRAZEPRAM [Concomitant]
     Indication: PRODUCT USED FOR UNKNOWN INDICATION
  9. PREDNISONE [Concomitant]
     Indication: PRODUCT USED FOR UNKNOWN INDICATION

REACTIONS (3)
  - Nasal septal operation [Unknown]
  - Sinusitis [Unknown]
  - Sinus congestion [Unknown]
